FAERS Safety Report 9515645 (Version 1)
Quarter: 2013Q3

REPORT INFORMATION
  Report Type: Spontaneous
  Country: US (occurrence: US)
  Receive Date: 20130911
  Receipt Date: 20130911
  Transmission Date: 20140515
  Serious: Yes (Hospitalization)
  Sender: FDA-Public Use
  Company Number: US-BAYER-2013-109150

PATIENT
  Age: 32 Year
  Sex: Female

DRUGS (2)
  1. OCELLA [Suspect]
  2. YAZ [Suspect]

REACTIONS (1)
  - Ischaemic stroke [None]
